FAERS Safety Report 10024770 (Version 1)
Quarter: 2014Q1

REPORT INFORMATION
  Report Type: Spontaneous
  Country: GB (occurrence: GB)
  Receive Date: 20140320
  Receipt Date: 20140320
  Transmission Date: 20141002
  Serious: Yes (Death)
  Sender: FDA-Public Use
  Company Number: GB-BAYER-2014-039361

PATIENT
  Sex: Male

DRUGS (1)
  1. XOFIGO [Suspect]
     Indication: HORMONE-REFRACTORY PROSTATE CANCER
     Dosage: DOSE REGIMEN: ONCE EVERY 4 WEEKS
     Route: 042
     Dates: start: 201401, end: 201401

REACTIONS (1)
  - Hormone-refractory prostate cancer [Fatal]
